FAERS Safety Report 6342717-8 (Version None)
Quarter: 2009Q3

REPORT INFORMATION
  Report Type: 
  Country: None (occurrence: None)
  Receive Date: 20090908
  Receipt Date: 20090901
  Transmission Date: 20100115
  Serious: Yes (Death, Hospitalization, Other)
  Sender: FDA-Public Use
  Company Number: US-TEVA-207879USA

PATIENT
  Sex: Female

DRUGS (11)
  1. LEUCOVORIN CALCIUM TABLET 5MG [Suspect]
     Indication: COLORECTAL CANCER
     Dates: end: 20071016
  2. FLUOROURACIL [Suspect]
     Indication: COLORECTAL CANCER
     Route: 042
  3. OXALIPLATIN [Suspect]
     Indication: COLORECTAL CANCER
  4. PROCHLORPERAZINE EDISYLATE [Concomitant]
  5. ZOLPIDEM TARTRATE [Concomitant]
  6. ESOMEPRAZOLE MAGNESIUM [Concomitant]
  7. HYDROCHLOROTHIAZIDE [Concomitant]
  8. TRAZODONE [Concomitant]
  9. METFORMIN HCL [Concomitant]
  10. BUPROPION HCL [Concomitant]
  11. PAROXETINE HCL [Concomitant]

REACTIONS (2)
  - DYSPNOEA [None]
  - PULMONARY FIBROSIS [None]
